FAERS Safety Report 9261976 (Version 1)
Quarter: 2013Q2

REPORT INFORMATION
  Report Type: Spontaneous
  Country: CH (occurrence: CH)
  Receive Date: 20130429
  Receipt Date: 20130429
  Transmission Date: 20140414
  Serious: Yes (Other)
  Sender: FDA-Public Use
  Company Number: CH-ABBOTT-13P-151-1082520-00

PATIENT
  Sex: Female

DRUGS (1)
  1. LOPINAVIR/RITONAVIR [Suspect]
     Indication: HIV INFECTION
     Dosage: 400/100 MG
     Route: 048

REACTIONS (1)
  - Abortion spontaneous [Unknown]
